FAERS Safety Report 7638694-X (Version None)
Quarter: 2011Q3

REPORT INFORMATION
  Report Type: 
  Country: None (occurrence: None)
  Receive Date: 20110727
  Receipt Date: 20110720
  Transmission Date: 20111222
  Serious: Yes (Other)
  Sender: FDA-Public Use
  Company Number: BE-AMGEN-BELSP2011037572

PATIENT
  Age: 76 Year
  Sex: Female

DRUGS (3)
  1. ENBREL [Suspect]
     Indication: PSORIASIS
     Dosage: 50 MG, WEEKLY
     Route: 058
  2. BONDRONAT                          /01304701/ [Concomitant]
     Dosage: UNK
  3. FEMARA [Concomitant]
     Dosage: UNK

REACTIONS (1)
  - BREAST CANCER RECURRENT [None]
